FAERS Safety Report 8135312-1 (Version None)
Quarter: 2012Q1

REPORT INFORMATION
  Report Type: 
  Country: None (occurrence: None)
  Receive Date: 20120214
  Receipt Date: 20120210
  Transmission Date: 20120608
  Serious: Yes (Hospitalization, Disabling, Other)
  Sender: FDA-Public Use
  Company Number: US-PFIZER INC-2012012270

PATIENT
  Sex: Female

DRUGS (1)
  1. LIPITOR [Suspect]
     Dosage: UNK

REACTIONS (15)
  - ACTIVITIES OF DAILY LIVING IMPAIRED [None]
  - DRY SKIN [None]
  - PELVIC FRACTURE [None]
  - DEAFNESS [None]
  - BLOOD CHOLESTEROL INCREASED [None]
  - ASTHENIA [None]
  - FALL [None]
  - DECREASED APPETITE [None]
  - SKIN EXFOLIATION [None]
  - HYPERTENSION [None]
  - SOMNOLENCE [None]
  - BRAIN INJURY [None]
  - APHAGIA [None]
  - RENAL DISORDER [None]
  - RIB FRACTURE [None]
